FAERS Safety Report 5164270-7 (Version None)
Quarter: 2006Q4

REPORT INFORMATION
  Report Type: 
  Country: None (occurrence: None)
  Receive Date: 20061205
  Receipt Date: 20061124
  Transmission Date: 20070319
  Serious: Yes (Hospitalization, Other)
  Sender: FDA-Public Use
  Company Number: FR-JNJFOC-20040301801

PATIENT
  Age: 53 Year
  Sex: Female
  Weight: 55 kg

DRUGS (6)
  1. REMICADE [Suspect]
     Indication: RHEUMATOID ARTHRITIS
     Route: 042
  2. HYDROCORTISONE [Suspect]
     Indication: DRUG USE FOR UNKNOWN INDICATION
     Route: 048
  3. NOVATREX [Suspect]
     Indication: RHEUMATOID ARTHRITIS
     Route: 048
  4. SPECIAFOLDINE [Concomitant]
     Indication: RHEUMATOID ARTHRITIS
  5. VOLTAREN [Concomitant]
     Route: 048
  6. FOSAMAX [Concomitant]
     Route: 048

REACTIONS (1)
  - CRYPTOCOCCOSIS [None]
